FAERS Safety Report 4358585-X (Version None)
Quarter: 2004Q2

REPORT INFORMATION
  Report Type: 
  Country: None (occurrence: None)
  Receive Date: 20040514
  Receipt Date: 20040127
  Transmission Date: 20050107
  Serious: Yes (Death)
  Sender: FDA-Public Use
  Company Number: CH-MERCK-0401CHE00032

PATIENT
  Age: 24 Year
  Sex: Female
  Weight: 72 kg

DRUGS (11)
  1. [THERAPY UNSPECIFIED] [Concomitant]
     Route: 065
  2. ZOVIRAX [Concomitant]
     Indication: HERPES VIRUS INFECTION
     Route: 042
  3. ANTIMICROBIAL (UNSPECIFIED) [Concomitant]
     Indication: FUNGAL INFECTION
     Route: 065
  4. CANCIDAS [Suspect]
     Indication: FUNGAL INFECTION
     Route: 042
     Dates: start: 20021019, end: 20021019
  5. FLUCONAZOLE [Concomitant]
     Indication: FUNGAL INFECTION
     Route: 065
  6. HORMONES (UNSPECIFIED) [Concomitant]
     Indication: HORMONE REPLACEMENT THERAPY
     Route: 065
  7. MERONEM [Concomitant]
     Indication: PYREXIA
     Route: 042
  8. METOCLOPRAMIDE HYDROCHLORIDE [Concomitant]
     Indication: NAUSEA
     Route: 065
  9. NOREPINEPHRINE HYDROCHLORIDE [Concomitant]
     Indication: HYPERTENSION
     Route: 042
  10. ZANTAC [Concomitant]
     Indication: PROPHYLAXIS
     Route: 042
  11. VANCOCIN INJECTION [Concomitant]
     Indication: PYREXIA
     Route: 042

REACTIONS (3)
  - FUNGAL SEPSIS [None]
  - SEPTIC SHOCK [None]
  - TRICHOSPORON INFECTION [None]
